FAERS Safety Report 10462868 (Version 1)
Quarter: 2014Q3

REPORT INFORMATION
  Report Type: Spontaneous
  Country: CH (occurrence: CH)
  Receive Date: 20140918
  Receipt Date: 20140918
  Transmission Date: 20150326
  Serious: Yes (Death, Life-Threatening)
  Sender: FDA-Public Use
  Company Number: CH-ASTRAZENECA-2014SE68011

PATIENT
  Age: 60 Year
  Sex: Male

DRUGS (27)
  1. INHIBACE MITE [Concomitant]
     Active Substance: CILAZAPRIL ANHYDROUS
  2. DOBUTAMIN FRESENIUS [Concomitant]
     Dates: start: 20140703
  3. LYSTHENON [Concomitant]
     Dates: start: 20140704, end: 20140704
  4. KONAKION MM [Concomitant]
     Dates: start: 20140706, end: 20140706
  5. METFIN [Concomitant]
     Active Substance: METFORMIN HYDROCHLORIDE
  6. SERTRALINE [Concomitant]
     Active Substance: SERTRALINE HYDROCHLORIDE
  7. NORADRENALIN [Concomitant]
     Active Substance: NOREPINEPHRINE\NOREPINEPHRINE BITARTRATE
  8. PROPOFOL LIPURO [Concomitant]
     Active Substance: PROPOFOL
     Dates: start: 20140704
  9. PERFALGAN [Suspect]
     Active Substance: ACETAMINOPHEN
     Indication: PRODUCT USED FOR UNKNOWN INDICATION
     Route: 042
     Dates: start: 20140703
  10. HEPARIN [Concomitant]
     Active Substance: HEPARIN SODIUM
  11. MAGNESIUM [Concomitant]
     Active Substance: MAGNESIUM
     Dates: start: 20140704, end: 20140704
  12. AUGMENTIN [Concomitant]
     Active Substance: AMOXICILLIN\CLAVULANATE POTASSIUM
     Dates: start: 20140706
  13. ASPIRIN CARDIO (NON AZ DRUG) [Suspect]
     Active Substance: ASPIRIN
     Indication: PRODUCT USED FOR UNKNOWN INDICATION
     Route: 048
     Dates: start: 20140704
  14. ALFUZOSIN [Concomitant]
     Active Substance: ALFUZOSIN
  15. REOPRO [Concomitant]
     Active Substance: ABCIXIMAB
     Dates: start: 20140703, end: 20140704
  16. MORPHIN [Concomitant]
     Active Substance: MORPHINE
  17. NOVALGIN [Concomitant]
     Active Substance: METAMIZOLE SODIUM
     Dates: start: 20140705, end: 20140706
  18. SINTENYL [Concomitant]
     Active Substance: FENTANYL CITRATE
     Dates: start: 20140704
  19. EFIENT [Concomitant]
     Active Substance: PRASUGREL HYDROCHLORIDE
     Dates: start: 20140703
  20. CORDARONE [Suspect]
     Active Substance: AMIODARONE HYDROCHLORIDE
     Indication: PRODUCT USED FOR UNKNOWN INDICATION
     Route: 042
     Dates: start: 20140705
  21. DORMICUM [Concomitant]
     Active Substance: MIDAZOLAM\MIDAZOLAM HYDROCHLORIDE
     Dates: start: 20140703
  22. TRACRIUM [Concomitant]
     Active Substance: ATRACURIUM BESYLATE
     Dates: start: 20140704, end: 20140704
  23. ASPEGIC [Concomitant]
     Active Substance: ASPIRIN DL-LYSINE
     Dates: start: 20140703, end: 20140703
  24. NEXIUM [Suspect]
     Active Substance: ESOMEPRAZOLE MAGNESIUM
     Indication: PRODUCT USED FOR UNKNOWN INDICATION
     Route: 042
     Dates: start: 20140704, end: 20140706
  25. ACTRAPID [Concomitant]
     Active Substance: INSULIN HUMAN
  26. ADRENALIN [Concomitant]
     Active Substance: EPINEPHRINE
     Dates: start: 20140705, end: 20140705
  27. ATORVASTATIN PFIZER [Concomitant]
     Active Substance: ATORVASTATIN
     Dates: start: 20140704

REACTIONS (1)
  - Coombs negative haemolytic anaemia [Fatal]

NARRATIVE: CASE EVENT DATE: 20140705
